FAERS Safety Report 5169408-3 (Version None)
Quarter: 2006Q4

REPORT INFORMATION
  Report Type: 
  Country: None (occurrence: None)
  Receive Date: 20061201
  Receipt Date: 20061122
  Transmission Date: 20070319
  Serious: Yes (Hospitalization)
  Sender: FDA-Public Use
  Company Number: 2006-05929

PATIENT
  Age: 72 Year
  Sex: Female

DRUGS (1)
  1. SULFAMETHOXAZOLE + TRIMETHOPRIM [Suspect]
     Indication: PNEUMOCYSTIS JIROVECI PNEUMONIA
     Dates: start: 20050406

REACTIONS (4)
  - DRUG HYPERSENSITIVITY [None]
  - ENCEPHALITIS HERPES [None]
  - MULTI-ORGAN DISORDER [None]
  - NEUROLOGICAL SYMPTOM [None]
